FAERS Safety Report 16507722 (Version 1)
Quarter: 2019Q3

REPORT INFORMATION
  Report Type: Spontaneous
  Country: US (occurrence: US)
  Receive Date: 20190702
  Receipt Date: 20190702
  Transmission Date: 20191004
  Serious: Yes (Other)
  Sender: FDA-Public Use
  Company Number: US-CIPLA LTD.-2019US04738

PATIENT

DRUGS (12)
  1. FLUOROURACIL. [Suspect]
     Active Substance: FLUOROURACIL
     Indication: ADENOCARCINOMA OF COLON
     Dosage: UNK, FOLFOX REGIMEN
     Route: 065
     Dates: start: 201505, end: 201512
  2. IRINOTECAN [Suspect]
     Active Substance: IRINOTECAN
     Dosage: UNK, FOLFIRI AND FOLFOXIRI REGIMENS, OVER A PERIOD OF 18 MONTHS
     Route: 065
  3. OXALIPLATIN. [Suspect]
     Active Substance: OXALIPLATIN
     Dosage: UNK, FOLFOXIRI REGIMEN, OVER A PERIOD OF 18 MONTHS
     Route: 065
  4. FLUOROURACIL. [Suspect]
     Active Substance: FLUOROURACIL
     Dosage: UNK, FOLFIRI REGIMEN
     Route: 065
     Dates: start: 201604, end: 201611
  5. FOLINIC ACID [Suspect]
     Active Substance: LEUCOVORIN
     Dosage: UNK, FOLFIRI AND FOLFOXIRI REGIMEN, OVER A PERIOD OF 18 MONTHS
     Route: 065
  6. FOLINIC ACID [Suspect]
     Active Substance: LEUCOVORIN
     Indication: ADENOCARCINOMA OF COLON
     Dosage: UNK, FOLFOX REGIMEN
     Route: 065
     Dates: start: 201505, end: 201512
  7. BEVACIZUMAB. [Suspect]
     Active Substance: BEVACIZUMAB
     Dosage: UNK, FOLFIRI AND FOLFOXIRI REGIMENS, OVER A PERIOD OF 18 MONTHS
     Route: 065
  8. FLUOROURACIL. [Suspect]
     Active Substance: FLUOROURACIL
     Dosage: UNK, FOLFIRI AND FOLFOXIRI REGIMENS OVER A PERIOD OF 18 MONTHS
     Route: 065
  9. IRINOTECAN [Suspect]
     Active Substance: IRINOTECAN
     Indication: ADENOCARCINOMA OF COLON
     Dosage: UNK, FOLFIRI REGIMEN
     Route: 065
     Dates: start: 201604, end: 201611
  10. FOLINIC ACID [Suspect]
     Active Substance: LEUCOVORIN
     Dosage: UNK, FOLFIRI REGIMEN
     Route: 065
     Dates: start: 201604, end: 201611
  11. BEVACIZUMAB. [Suspect]
     Active Substance: BEVACIZUMAB
     Indication: ADENOCARCINOMA OF COLON
     Dosage: UNK, FOLFIRI REGIMEN
     Route: 065
     Dates: start: 201604, end: 201611
  12. OXALIPLATIN. [Suspect]
     Active Substance: OXALIPLATIN
     Indication: ADENOCARCINOMA OF COLON
     Dosage: UNK, FOLFOX REGIMEN
     Route: 065
     Dates: start: 201505, end: 201512

REACTIONS (2)
  - Malignant neoplasm progression [Unknown]
  - Treatment failure [Unknown]
